FAERS Safety Report 17180871 (Version 2)
Quarter: 2020Q1

REPORT INFORMATION
  Report Type: Spontaneous
  Country: AT (occurrence: CH)
  Receive Date: 20191219
  Receipt Date: 20200225
  Transmission Date: 20200409
  Serious: Yes (Hospitalization, Other)
  Sender: FDA-Public Use
  Company Number: AT-BAYER-2019-231299

PATIENT
  Age: 65 Year
  Sex: Male

DRUGS (2)
  1. XOFIGO [Suspect]
     Active Substance: RADIUM RA-223 DICHLORIDE
     Indication: HORMONE-REFRACTORY PROSTATE CANCER
     Dosage: 3456 MBQ
     Dates: start: 20191008, end: 20191008
  2. XOFIGO [Suspect]
     Active Substance: RADIUM RA-223 DICHLORIDE
     Indication: METASTASES TO BONE
     Dosage: 3226 MBQ
     Dates: start: 20191119, end: 20191119

REACTIONS (5)
  - Nerve compression [None]
  - Prostate cancer metastatic [None]
  - Staphylococcal infection [None]
  - Hypoaesthesia [Recovering/Resolving]
  - Pleural effusion [None]

NARRATIVE: CASE EVENT DATE: 20191217
